FAERS Safety Report 5786046-X (Version None)
Quarter: 2008Q2

REPORT INFORMATION
  Report Type: 
  Country: None (occurrence: None)
  Receive Date: 20080624
  Receipt Date: 20070607
  Transmission Date: 20081010
  Serious: No
  Sender: FDA-Public Use
  Company Number: US-ASTRAZENECA-2007UW13777

PATIENT

DRUGS (2)
  1. PULMICORT [Suspect]
     Route: 055
  2. ADVAIR DISKUS 100/50 [Suspect]

REACTIONS (2)
  - DYSPNOEA [None]
  - WITHDRAWAL SYNDROME [None]
